FAERS Safety Report 10381290 (Version 1)
Quarter: 2014Q3

REPORT INFORMATION
  Report Type: Spontaneous
  Country: GB (occurrence: None)
  Receive Date: 20140811
  Receipt Date: 20140811
  Transmission Date: 20150326
  Serious: Yes (Other)
  Sender: FDA-Public Use
  Company Number: VAL_03269_2014

PATIENT
  Age: 3 Year
  Sex: Male

DRUGS (5)
  1. CALCITRIOL. [Suspect]
     Active Substance: CALCITRIOL
     Indication: PRODUCT USED FOR UNKNOWN INDICATION
     Dosage: (DRUG REPORTED AS VITMAIN D3)?
     Dates: start: 20140529
  2. VENTOLIN /001369502/ [Concomitant]
  3. MONTELUKAST [Concomitant]
     Active Substance: MONTELUKAST SODIUM
  4. PENICILLIN V /00001801/ [Concomitant]
  5. QVAR [Concomitant]
     Active Substance: BECLOMETHASONE DIPROPIONATE

REACTIONS (3)
  - Rash generalised [None]
  - Rash pruritic [None]
  - No therapeutic response [None]

NARRATIVE: CASE EVENT DATE: 20140715
